FAERS Safety Report 9655487 (Version 2)
Quarter: 2013Q4

REPORT INFORMATION
  Report Type: Spontaneous
  Country: FR (occurrence: FR)
  Receive Date: 20131029
  Receipt Date: 20131029
  Transmission Date: 20140711
  Serious: Yes (Death, Hospitalization)
  Sender: FDA-Public Use
  Company Number: FR-ABBVIE-13X-056-1142413-00

PATIENT
  Age: 49 Year
  Sex: Female

DRUGS (7)
  1. DEPAKOTE [Suspect]
     Indication: DEPRESSION
     Route: 048
     Dates: start: 200903
  2. ZELBORAF [Suspect]
     Indication: MALIGNANT MELANOMA
     Route: 048
     Dates: start: 20121015
  3. DEXERYL (FRANCE) [Suspect]
     Indication: PRODUCT USED FOR UNKNOWN INDICATION
     Route: 061
  4. MUPHORAN [Suspect]
     Indication: PRODUCT USED FOR UNKNOWN INDICATION
     Route: 051
     Dates: start: 20130418, end: 20130418
  5. MUPHORAN [Suspect]
     Route: 051
     Dates: start: 20130510, end: 20130510
  6. MUPHORAN [Suspect]
     Route: 051
     Dates: start: 20130617, end: 20130617
  7. MUPHORAN [Suspect]
     Route: 051
     Dates: start: 20130705, end: 20130705

REACTIONS (4)
  - Death [Fatal]
  - Anaemia [Unknown]
  - Thrombocytopenia [Unknown]
  - Neutropenia [Recovered/Resolved]
